FAERS Safety Report 5877549-8 (Version None)
Quarter: 2008Q3

REPORT INFORMATION
  Report Type: 
  Country: None (occurrence: None)
  Receive Date: 20080911
  Receipt Date: 20080902
  Transmission Date: 20090109
  Serious: Yes (Other)
  Sender: FDA-Public Use
  Company Number: PHRM2008FR01151

PATIENT
  Sex: Male
  Weight: 83 kg

DRUGS (1)
  1. NEORAL [Suspect]
     Indication: NEPHRITIS AUTOIMMUNE
     Dosage: 125 MG, BID
     Route: 048
     Dates: start: 19900101, end: 20061106

REACTIONS (2)
  - OPTIC NEUROPATHY [None]
  - VISUAL ACUITY REDUCED [None]
